FAERS Safety Report 7693787-6 (Version None)
Quarter: 2011Q3

REPORT INFORMATION
  Report Type: 
  Country: None (occurrence: None)
  Receive Date: 20110819
  Receipt Date: 20110808
  Transmission Date: 20111222
  Serious: Yes (Hospitalization)
  Sender: FDA-Public Use
  Company Number: JP-ELI_LILLY_AND_COMPANY-JP201107006710

PATIENT
  Age: 49 Year
  Sex: Male

DRUGS (5)
  1. MIRTAZAPINE [Concomitant]
     Dosage: UNK
     Route: 048
     Dates: start: 20110101, end: 20110701
  2. CYMBALTA [Suspect]
     Indication: DEPRESSION
     Dosage: 20 MG, QD
     Route: 048
     Dates: start: 20110625, end: 20110629
  3. MIRTAZAPINE [Concomitant]
     Dosage: UNK
     Route: 048
     Dates: start: 20110702
  4. MIRTAZAPINE [Concomitant]
     Dosage: UNK
     Route: 048
  5. MIRTAZAPINE [Concomitant]
     Indication: DEPRESSION
     Dosage: UNK
     Route: 048
     Dates: start: 20110512, end: 20110101

REACTIONS (13)
  - MUSCULOSKELETAL STIFFNESS [None]
  - INSOMNIA [None]
  - PALPITATIONS [None]
  - PERIPHERAL COLDNESS [None]
  - DIZZINESS [None]
  - DEPRESSED MOOD [None]
  - DECREASED APPETITE [None]
  - ERUCTATION [None]
  - IRRITABILITY [None]
  - CHEST DISCOMFORT [None]
  - DISTURBANCE IN ATTENTION [None]
  - SYNCOPE [None]
  - ANXIETY [None]
